FAERS Safety Report 15053202 (Version 2)
Quarter: 2018Q3

REPORT INFORMATION
  Report Type: Report from Study
  Country: GT (occurrence: GT)
  Receive Date: 20180622
  Receipt Date: 20180703
  Transmission Date: 20181010
  Serious: Yes (Hospitalization)
  Sender: FDA-Public Use
  Company Number: PHHY2018GT026231

PATIENT
  Age: 47 Year
  Sex: Female

DRUGS (1)
  1. EXFORGE [Suspect]
     Active Substance: AMLODIPINE BESYLATE\VALSARTAN
     Indication: HYPERTENSION
     Dosage: 1 DF (AMLODIPINE 5MG, VALSARTAN 160 MG), UNK
     Route: 065

REACTIONS (5)
  - Pneumonia [Unknown]
  - Speech disorder [Not Recovered/Not Resolved]
  - Infarction [Unknown]
  - Dysstasia [Not Recovered/Not Resolved]
  - Cerebrovascular accident [Unknown]
